FAERS Safety Report 22620328 (Version 1)
Quarter: 2023Q2

REPORT INFORMATION
  Report Type: Spontaneous
  Country: JP (occurrence: JP)
  Receive Date: 20230620
  Receipt Date: 20230620
  Transmission Date: 20230721
  Serious: Yes (Hospitalization)
  Sender: FDA-Public Use
  Company Number: JP-TEVA-2023-JP-2898561

PATIENT
  Age: 66 Year
  Sex: Male

DRUGS (7)
  1. ENALAPRIL [Suspect]
     Active Substance: ENALAPRIL
     Indication: Cardiac failure congestive
     Dosage: 2.5 MILLIGRAM DAILY;
     Route: 065
  2. ENALAPRIL [Suspect]
     Active Substance: ENALAPRIL
     Dosage: 3.75 MILLIGRAM DAILY; ON DAY 6
     Route: 065
  3. BISOPROLOL [Concomitant]
     Active Substance: BISOPROLOL
     Indication: Cardiac failure congestive
     Dosage: 2.5 MILLIGRAM DAILY;
     Route: 065
  4. SPIRONOLACTONE [Concomitant]
     Active Substance: SPIRONOLACTONE
     Indication: Cardiac failure congestive
     Dosage: 50 MILLIGRAM DAILY;
     Route: 065
  5. TOLVAPTAN [Concomitant]
     Active Substance: TOLVAPTAN
     Indication: Cardiac failure congestive
     Dosage: 15 MILLIGRAM DAILY;
     Route: 065
  6. AZOSEMIDE [Concomitant]
     Active Substance: AZOSEMIDE
     Indication: Cardiac failure congestive
     Dosage: 60 MILLIGRAM DAILY;
     Route: 065
  7. DENOPAMINE [Concomitant]
     Active Substance: DENOPAMINE
     Indication: Cardiac failure congestive
     Dosage: 15 MILLIGRAM DAILY;
     Route: 065

REACTIONS (3)
  - Hypotension [Recovering/Resolving]
  - Cardiac output decreased [Recovering/Resolving]
  - Renal impairment [Recovering/Resolving]
